FAERS Safety Report 12790504 (Version 2)
Quarter: 2016Q4

REPORT INFORMATION
  Report Type: Report from Study
  Country: BR (occurrence: BR)
  Receive Date: 20160929
  Receipt Date: 20161012
  Transmission Date: 20170207
  Serious: Yes (Other)
  Sender: FDA-Public Use
  Company Number: BR-ROCHE-1835347

PATIENT
  Sex: Female
  Weight: 51 kg

DRUGS (5)
  1. XOLAIR [Suspect]
     Active Substance: OMALIZUMAB
     Route: 058
     Dates: start: 20160901
  2. ALENIA (BRAZIL) [Concomitant]
     Active Substance: BUDESONIDE\FORMOTEROL FUMARATE
     Indication: ASTHMA
     Route: 055
  3. XOLAIR [Suspect]
     Active Substance: OMALIZUMAB
     Indication: ASTHMA
     Route: 058
  4. SPIRIVA [Concomitant]
     Active Substance: TIOTROPIUM BROMIDE MONOHYDRATE
     Indication: ASTHMA
     Route: 055
  5. ALENIA (BRAZIL) [Concomitant]
     Active Substance: BUDESONIDE\FORMOTEROL FUMARATE
     Route: 055

REACTIONS (8)
  - Headache [Recovering/Resolving]
  - Eye irritation [Recovering/Resolving]
  - Peripheral swelling [Recovering/Resolving]
  - Visual impairment [Recovering/Resolving]
  - Eye infection bacterial [Recovered/Resolved]
  - Somnolence [Recovering/Resolving]
  - Ocular hyperaemia [Recovering/Resolving]
  - Eye inflammation [Recovering/Resolving]
